FAERS Safety Report 18887124 (Version 1)
Quarter: 2021Q1

REPORT INFORMATION
  Report Type: Report from Study
  Country: US (occurrence: US)
  Receive Date: 20210212
  Receipt Date: 20210212
  Transmission Date: 20210420
  Serious: Yes (Other)
  Sender: FDA-Public Use
  Company Number: US-BIOGEN-2021BI00971106

PATIENT
  Sex: Female

DRUGS (3)
  1. TECFIDERA [Suspect]
     Active Substance: DIMETHYL FUMARATE
     Dosage: DOSE:120MG BID FOR 7 DAYS THEN 240MG BID
     Route: 048
     Dates: start: 20210115, end: 20210120
  2. TECFIDERA [Suspect]
     Active Substance: DIMETHYL FUMARATE
     Dosage: STARTING DOSE
     Route: 048
     Dates: start: 20210113, end: 20210120
  3. TECFIDERA [Suspect]
     Active Substance: DIMETHYL FUMARATE
     Indication: MULTIPLE SCLEROSIS
     Dosage: STARTING DOSE
     Route: 048
     Dates: start: 20210113

REACTIONS (14)
  - Weight increased [Unknown]
  - Retching [Unknown]
  - Flatulence [Unknown]
  - Dyspepsia [Unknown]
  - Abdominal pain [Unknown]
  - Throat tightness [Unknown]
  - Diarrhoea [Unknown]
  - Vomiting [Unknown]
  - Drug intolerance [Unknown]
  - Gait disturbance [Unknown]
  - Abdominal pain upper [Unknown]
  - Memory impairment [Unknown]
  - Flushing [Unknown]
  - Hepatotoxicity [Unknown]
